FAERS Safety Report 13419011 (Version 2)
Quarter: 2025Q4

REPORT INFORMATION
  Report Type: Spontaneous
  Country: US (occurrence: US)
  Receive Date: 20170407
  Receipt Date: 20251124
  Transmission Date: 20260118
  Serious: No
  Sender: JOHNSON AND JOHNSON
  Company Number: US-JNJFOC-20170319183

PATIENT
  Sex: Male

DRUGS (6)
  1. RISPERDAL [Suspect]
     Active Substance: RISPERIDONE
     Indication: Autism spectrum disorder
     Route: 048
     Dates: start: 20121008, end: 20130326
  2. RISPERDAL [Suspect]
     Active Substance: RISPERIDONE
     Route: 048
     Dates: end: 20130409
  3. RISPERDAL [Suspect]
     Active Substance: RISPERIDONE
  4. RISPERDAL [Suspect]
     Active Substance: RISPERIDONE
  5. RISPERDAL [Suspect]
     Active Substance: RISPERIDONE
  6. RISPERDAL [Suspect]
     Active Substance: RISPERIDONE

REACTIONS (5)
  - Emotional disorder [Unknown]
  - Metabolic disorder [Unknown]
  - Gynaecomastia [Unknown]
  - Weight increased [Unknown]
  - Increased appetite [Unknown]
